FAERS Safety Report 5935726-1 (Version None)
Quarter: 2008Q4

REPORT INFORMATION
  Report Type: 
  Country: None (occurrence: None)
  Receive Date: 20081029
  Receipt Date: 20081029
  Transmission Date: 20090506
  Serious: Yes (Hospitalization)
  Sender: FDA-Public Use
  Company Number: None

PATIENT
  Age: 67 Year
  Sex: Male
  Weight: 85.9 kg

DRUGS (1)
  1. WARFARIN SODIUM [Suspect]
     Dosage: 5 MG OTHER PO
     Route: 048
     Dates: start: 20080423, end: 20080608

REACTIONS (3)
  - ABDOMINAL DISCOMFORT [None]
  - HAEMATURIA [None]
  - HAEMORRHAGE [None]
